FAERS Safety Report 4539788-8 (Version None)
Quarter: 2004Q4

REPORT INFORMATION
  Report Type: 
  Country: None (occurrence: None)
  Receive Date: 20041223
  Receipt Date: 20041215
  Transmission Date: 20050328
  Serious: Yes (Death, Hospitalization)
  Sender: FDA-Public Use
  Company Number: OXYA20040006

PATIENT
  Age: 2 Year
  Sex: Male

DRUGS (1)
  1. OXYCODONE AND ACETAMINOPHEN [Suspect]
     Dosage: PO
     Route: 048
     Dates: start: 20030101, end: 20030101

REACTIONS (6)
  - BRAIN DEATH [None]
  - COMA [None]
  - INJURY [None]
  - OVERDOSE [None]
  - SOMNOLENCE [None]
  - THERMAL BURN [None]
